FAERS Safety Report 9304057 (Version 1)
Quarter: 2013Q2

REPORT INFORMATION
  Report Type: Report from Study
  Country: US (occurrence: US)
  Receive Date: 20130522
  Receipt Date: 20130522
  Transmission Date: 20140414
  Serious: Yes (Other)
  Sender: FDA-Public Use
  Company Number: US-CELGENEUS-163-C5013-13051936

PATIENT
  Age: 64 Year
  Sex: Male
  Weight: 94.2 kg

DRUGS (4)
  1. CC-5013 [Suspect]
     Indication: B-CELL LYMPHOMA
     Dosage: 10 MILLIGRAM
     Route: 048
     Dates: start: 20120614
  2. CC-5013 [Suspect]
     Dosage: 2.5 MILLIGRAM
     Route: 048
     Dates: start: 20130411
  3. RITUXIMAB [Suspect]
     Indication: B-CELL LYMPHOMA
     Dosage: 375 MILLIGRAM/SQ. METER
     Route: 065
     Dates: start: 20120613
  4. RITUXIMAB [Suspect]
     Dosage: 375 MILLIGRAM
     Route: 065
     Dates: start: 20130410

REACTIONS (1)
  - Squamous cell carcinoma of skin [Not Recovered/Not Resolved]
